FAERS Safety Report 16232293 (Version 1)
Quarter: 2019Q2

REPORT INFORMATION
  Report Type: Spontaneous
  Country: JP (occurrence: JP)
  Receive Date: 20190424
  Receipt Date: 20190424
  Transmission Date: 20190711
  Serious: Yes (Hospitalization)
  Sender: FDA-Public Use
  Company Number: PHHY2019JP093531

PATIENT
  Age: 71 Year
  Sex: Male

DRUGS (3)
  1. STARSIS [Suspect]
     Active Substance: NATEGLINIDE
     Indication: DIABETES MELLITUS
     Dosage: 270 MG, QD
     Route: 048
  2. STARSIS [Suspect]
     Active Substance: NATEGLINIDE
     Dosage: 270 MG, QD
     Route: 065
     Dates: start: 20190219
  3. ELIQUIS [Concomitant]
     Active Substance: APIXABAN
     Indication: PRODUCT USED FOR UNKNOWN INDICATION
     Dosage: UNK
     Route: 065

REACTIONS (1)
  - Thrombosis [Recovered/Resolved]
